FAERS Safety Report 9999683 (Version 2)
Quarter: 2014Q2

REPORT INFORMATION
  Report Type: Report from Study
  Country: DE (occurrence: DE)
  Receive Date: 20140312
  Receipt Date: 20140516
  Transmission Date: 20141212
  Serious: Yes (Other)
  Sender: FDA-Public Use
  Company Number: DE-ABBVIE-14P-062-1209136-00

PATIENT
  Sex: Female
  Weight: 70 kg

DRUGS (5)
  1. HUMIRA [Suspect]
     Indication: RHEUMATOID ARTHRITIS
     Route: 058
     Dates: start: 20130909
  2. METAMIZOL HEXAL [Concomitant]
     Indication: PRODUCT USED FOR UNKNOWN INDICATION
  3. PREDNISOLONE [Concomitant]
     Indication: RHEUMATOID ARTHRITIS
     Dosage: 7.5 - 5.0 MG DAILY
  4. TILIDIN [Concomitant]
     Indication: RHEUMATOID ARTHRITIS
     Dosage: 150/12 MG
  5. ANALGETIC DRUG [Concomitant]
     Indication: RHEUMATOID ARTHRITIS
     Dates: start: 201308

REACTIONS (1)
  - Diabetes mellitus [Not Recovered/Not Resolved]
